FAERS Safety Report 11111146 (Version 1)
Quarter: 2015Q2

REPORT INFORMATION
  Report Type: Spontaneous
  Country: US (occurrence: US)
  Receive Date: 20150513
  Receipt Date: 20150513
  Transmission Date: 20150821
  Serious: No
  Sender: FDA-Public Use
  Company Number: US-PFIZER INC-2015158828

PATIENT
  Age: 61 Year
  Sex: Female
  Weight: 98 kg

DRUGS (2)
  1. ADVIL [Suspect]
     Active Substance: IBUPROFEN
     Indication: ARTHRITIS
     Dosage: 200 MG, TWO OR THREE TIMES A DAY AS NEEDED
  2. ADVIL [Suspect]
     Active Substance: IBUPROFEN
     Indication: KNEE OPERATION

REACTIONS (2)
  - Intentional product misuse [Unknown]
  - Drug ineffective [Unknown]
